FAERS Safety Report 13829073 (Version 2)
Quarter: 2017Q3

REPORT INFORMATION
  Report Type: Spontaneous
  Country: JP (occurrence: JP)
  Receive Date: 20170803
  Receipt Date: 20170810
  Transmission Date: 20171127
  Serious: Yes (Hospitalization)
  Sender: FDA-Public Use
  Company Number: JP-SHIONOGI, INC-2017000640

PATIENT
  Age: 56 Year
  Sex: Male

DRUGS (1)
  1. FINIBAX [Suspect]
     Active Substance: DORIPENEM MONOHYDRATE
     Dosage: 0.25 G, QD
     Route: 041
     Dates: start: 20170723, end: 20170723

REACTIONS (4)
  - Dyspnoea [Unknown]
  - Hepatic function abnormal [Unknown]
  - Abdominal pain [Unknown]
  - Hyperhidrosis [Unknown]

NARRATIVE: CASE EVENT DATE: 20170723
